FAERS Safety Report 8437453-8 (Version None)
Quarter: 2012Q2

REPORT INFORMATION
  Report Type: 
  Country: None (occurrence: None)
  Receive Date: 20120614
  Receipt Date: 20120328
  Transmission Date: 20120825
  Serious: No
  Sender: FDA-Public Use
  Company Number: US-AMGEN-USASP2012019937

PATIENT
  Age: 60 Year
  Sex: Female

DRUGS (8)
  1. CITRACAL + D [Concomitant]
     Dosage: 1 MG, QD
  2. ASACOL [Concomitant]
  3. SIMVASTATIN [Concomitant]
  4. METOPROLOL TARTRATE [Concomitant]
  5. HYDROCHLOROTHIAZIDE [Concomitant]
  6. SYNTHROID [Concomitant]
  7. PANTOPRAZOLE [Concomitant]
  8. PROLIA [Suspect]
     Indication: PRODUCT USED FOR UNKNOWN INDICATION
     Dosage: 60 MG, Q6MO
     Dates: start: 20110101

REACTIONS (5)
  - EXFOLIATIVE RASH [None]
  - RASH ERYTHEMATOUS [None]
  - RASH PRURITIC [None]
  - PAIN OF SKIN [None]
  - RASH PAPULAR [None]
